FAERS Safety Report 6566267-9 (Version None)
Quarter: 2010Q1

REPORT INFORMATION
  Report Type: 
  Country: None (occurrence: None)
  Receive Date: 20100127
  Receipt Date: 20100115
  Transmission Date: 20100710
  Serious: Yes (Hospitalization)
  Sender: FDA-Public Use
  Company Number: 2009-03940

PATIENT
  Sex: Male
  Weight: 76.4 kg

DRUGS (21)
  1. VELCADE [Suspect]
     Indication: MULTIPLE MYELOMA
     Dosage: 1 MG/M2, INTRAVENOUS
     Route: 042
     Dates: start: 20090406, end: 20090910
  2. ALPHA LIPOIC ACID (THIOCTIC ACID) [Concomitant]
  3. LIPITOR [Concomitant]
  4. LISINOPRIL [Concomitant]
  5. L-CARNITINE /00878601/ (LEVOCARNITINE) [Concomitant]
  6. FAMVIR /01226201/ (FAMCICLOVIR) [Concomitant]
  7. FLOMAX /00889901/ (MORNIFLUMATE) [Concomitant]
  8. GLYBURIDE AND METFORMIN HCL [Concomitant]
  9. JANUVIA [Concomitant]
  10. LANTUS [Concomitant]
  11. MOTRIN [Concomitant]
  12. MVI (VITAMINS NOS) NEUPOGEN (FILGRASTIM) [Concomitant]
  13. NEUPOGEN [Concomitant]
  14. MOTRIN [Concomitant]
  15. MVI (VITAMINS NOS) [Concomitant]
  16. NEUPOGEN [Concomitant]
  17. PREDNISONE (PREDNISONE) [Concomitant]
  18. PRILOSEC /006612 [Concomitant]
  19. SAW PALMETTO /00833501/ (SERENOA REPENS) [Concomitant]
  20. VITAMIN D [Concomitant]
  21. ZOFRAN /00955301/ (ONDANSETRON) [Concomitant]

REACTIONS (7)
  - EXOSTOSIS [None]
  - HYPOAESTHESIA [None]
  - INADEQUATE ANALGESIA [None]
  - INTERVERTEBRAL DISC PROTRUSION [None]
  - MALIGNANT NEOPLASM PROGRESSION [None]
  - PARAESTHESIA [None]
  - SPINAL OSTEOARTHRITIS [None]
